FAERS Safety Report 13392443 (Version 2)
Quarter: 2017Q2

REPORT INFORMATION
  Report Type: Spontaneous
  Country: JP (occurrence: JP)
  Receive Date: 20170331
  Receipt Date: 20170428
  Transmission Date: 20170830
  Serious: Yes (Death, Life-Threatening, Other)
  Sender: FDA-Public Use
  Company Number: JP-ELI_LILLY_AND_COMPANY-JP201703012104

PATIENT
  Age: 37 Year
  Sex: Female
  Weight: 44 kg

DRUGS (6)
  1. PACLITAXEL. [Concomitant]
     Active Substance: PACLITAXEL
     Indication: TONGUE CANCER RECURRENT
     Dosage: 80 MG/M2, WEEKLY (1/W)
     Route: 065
     Dates: start: 201505, end: 201506
  2. ERBITUX [Suspect]
     Active Substance: CETUXIMAB
     Indication: TONGUE CANCER RECURRENT
     Dosage: 400 MG/M2, WEEKLY (1/W)
     Route: 042
  3. ERBITUX [Suspect]
     Active Substance: CETUXIMAB
     Dosage: 250 MG/M2, WEEKLY (1/W)
     Route: 042
     Dates: start: 201505, end: 201506
  4. ERBITUX [Suspect]
     Active Substance: CETUXIMAB
     Dosage: 400 MG/M2, 2/M
     Route: 042
     Dates: start: 201506, end: 201608
  5. PACLITAXEL. [Concomitant]
     Active Substance: PACLITAXEL
     Dosage: 80 MG/M2, 2/M
     Route: 042
     Dates: start: 201506, end: 201608
  6. INSULIN [Concomitant]
     Active Substance: INSULIN NOS
     Indication: TYPE 1 DIABETES MELLITUS
     Dosage: UNK UNK, UNKNOWN
     Route: 058

REACTIONS (7)
  - Cachexia [Fatal]
  - Pneumonia aspiration [Fatal]
  - Malignant neoplasm progression [Fatal]
  - Off label use [Unknown]
  - Diabetes mellitus inadequate control [Fatal]
  - Acne [Recovered/Resolved]
  - Hydrocephalus [Fatal]

NARRATIVE: CASE EVENT DATE: 2015
